FAERS Safety Report 4644996-1 (Version None)
Quarter: 2005Q2

REPORT INFORMATION
  Report Type: 
  Country: None (occurrence: None)
  Receive Date: 20050426
  Receipt Date: 20050418
  Transmission Date: 20051028
  Serious: Yes (Hospitalization)
  Sender: FDA-Public Use
  Company Number: PHRM2005FR01334

PATIENT
  Age: 35 Year
  Sex: Female

DRUGS (2)
  1. TEGRETOL [Suspect]
     Indication: MEDICATION ERROR
     Dosage: 16 G, ONCE/SINGLE
     Route: 048
     Dates: start: 20050123, end: 20050123
  2. ALCOHOL [Concomitant]

REACTIONS (10)
  - BLOOD ALCOHOL INCREASED [None]
  - DRUG LEVEL ABOVE THERAPEUTIC [None]
  - DYSPNOEA [None]
  - GASTRIC LAVAGE [None]
  - GLASGOW COMA SCALE ABNORMAL [None]
  - INTENTIONAL MISUSE [None]
  - INTUBATION [None]
  - MIOSIS [None]
  - TACHYCARDIA [None]
  - VOMITING [None]
